FAERS Safety Report 4288967-6 (Version None)
Quarter: 2004Q1

REPORT INFORMATION
  Report Type: 
  Country: None (occurrence: None)
  Receive Date: 20040205
  Receipt Date: 20030519
  Transmission Date: 20041129
  Serious: Yes (Life-Threatening, Hospitalization)
  Sender: FDA-Public Use
  Company Number: ETHYOL-02401

PATIENT
  Age: 47 Year
  Sex: Male
  Weight: 88.905 kg

DRUGS (2)
  1. AMIFOSTINE (AMIFOSTINE) [Suspect]
     Dosage: 500 MG, 1 IN 1 D, SUBCUTANEOUS
     Route: 058
     Dates: start: 20030505, end: 20030514
  2. AMIFOSTINE AMIFOSTINE) [Suspect]
     Dosage: 500 MG, 1 IN 1 D, SUBCUTANEOUS
     Route: 058
     Dates: start: 20030505, end: 20030514

REACTIONS (3)
  - HYPOTENSION [None]
  - PYREXIA [None]
  - RASH [None]
